FAERS Safety Report 22006121 (Version 1)
Quarter: 2023Q1

REPORT INFORMATION
  Report Type: Spontaneous
  Country: US (occurrence: None)
  Receive Date: 20230216
  Receipt Date: 20230216
  Transmission Date: 20230418
  Serious: Yes (Hospitalization)
  Sender: FDA-Public Use
  Company Number: None

PATIENT
  Age: 69 Year
  Sex: Female
  Weight: 80.74 kg

DRUGS (12)
  1. CAPECITABINE [Suspect]
     Active Substance: CAPECITABINE
     Indication: Rectal cancer
     Dosage: FREQUENCY : TWICE A DAY;?
     Route: 048
     Dates: start: 20230202
  2. ALCOHOL WIPE (ISOPROPYL ALCOHOL) [Concomitant]
     Active Substance: ISOPROPYL ALCOHOL
  3. ATORVASTATIN [Concomitant]
  4. CALCIUM [Concomitant]
     Active Substance: CALCIUM
  5. COREG [Concomitant]
  6. GLIPIZIDE [Concomitant]
  7. LISINOPRIL-HYDROCHLOROTHIAZIDE [Concomitant]
  8. METFORMIN [Concomitant]
  9. PLAVIX [Concomitant]
  10. SPIRIVA [Concomitant]
  11. VITAMIN D [Concomitant]
  12. ZYRTEC [Concomitant]

REACTIONS (1)
  - Haemorrhage [None]
